FAERS Safety Report 5403013-6 (Version None)
Quarter: 2007Q3

REPORT INFORMATION
  Report Type: 
  Country: None (occurrence: None)
  Receive Date: 20070801
  Receipt Date: 20070724
  Transmission Date: 20080115
  Serious: Yes (Disabling)
  Sender: FDA-Public Use
  Company Number: DK-ASTRAZENECA-2007SE04147

PATIENT
  Age: 51 Year
  Sex: Female

DRUGS (1)
  1. XYLOCAINE [Suspect]
     Dates: start: 20031204

REACTIONS (6)
  - CARDIAC DISORDER [None]
  - DIPLOPIA [None]
  - DIZZINESS [None]
  - DYSPNOEA [None]
  - PARAESTHESIA ORAL [None]
  - TINNITUS [None]
